FAERS Safety Report 24742748 (Version 1)
Quarter: 2024Q4

REPORT INFORMATION
  Report Type: Spontaneous
  Country: US (occurrence: None)
  Receive Date: 20241216
  Receipt Date: 20241216
  Transmission Date: 20250114
  Serious: Yes (Death)
  Sender: Public
  Company Number: None

PATIENT
  Age: 74 Year
  Sex: Female

DRUGS (4)
  1. POMALYST [Suspect]
     Active Substance: POMALIDOMIDE
     Indication: Plasma cell myeloma
     Dosage: 3MG QD ORAL
     Route: 048
     Dates: start: 20240305, end: 20241202
  2. TECLISTAMAB [Suspect]
     Active Substance: TECLISTAMAB
  3. ANAKINRA [Suspect]
     Active Substance: ANAKINRA
  4. DECADRON [Suspect]
     Active Substance: DEXAMETHASONE

REACTIONS (4)
  - Immune effector cell-associated neurotoxicity syndrome [None]
  - Sepsis [None]
  - Bacteraemia [None]
  - Hyporesponsive to stimuli [None]

NARRATIVE: CASE EVENT DATE: 20241202
